FAERS Safety Report 16469972 (Version 1)
Quarter: 2019Q2

REPORT INFORMATION
  Report Type: Spontaneous
  Country: US (occurrence: US)
  Receive Date: 20190514
  Receipt Date: 20190514
  Transmission Date: 20190711
  Serious: Yes (Hospitalization)
  Sender: FDA-Public Use
  Company Number: None

PATIENT
  Age: 76 Year
  Sex: Male
  Weight: 105.7 kg

DRUGS (1)
  1. APIXABAN, 2.5 MG OR 5MG [Suspect]
     Active Substance: APIXABAN
     Indication: DEEP VEIN THROMBOSIS
     Dosage: 2.5 MG OR 5 MG 2 TIMES DAILY ORAL
     Route: 048
     Dates: start: 20181126, end: 20190510

REACTIONS (11)
  - Visual impairment [None]
  - Syncope [None]
  - Dizziness [None]
  - Nausea [None]
  - Weight bearing difficulty [None]
  - Dyspnoea [None]
  - Vomiting [None]
  - Arthralgia [None]
  - Headache [None]
  - Joint swelling [None]
  - Chest pain [None]

NARRATIVE: CASE EVENT DATE: 20190511
